FAERS Safety Report 23635774 (Version 2)
Quarter: 2024Q2

REPORT INFORMATION
  Report Type: Spontaneous
  Country: JP (occurrence: None)
  Receive Date: 20240315
  Receipt Date: 20240412
  Transmission Date: 20240715
  Serious: Yes (Death)
  Sender: FDA-Public Use
  Company Number: 2024A061537

PATIENT
  Age: 71 Year
  Sex: Male

DRUGS (4)
  1. TAGRISSO [Suspect]
     Active Substance: OSIMERTINIB
     Indication: Non-small cell lung cancer
     Route: 048
     Dates: start: 20230420, end: 20230927
  2. TAGRISSO [Suspect]
     Active Substance: OSIMERTINIB
     Indication: Non-small cell lung cancer
     Route: 048
     Dates: start: 20230928, end: 20240217
  3. CANDESARTAN CILEXETIL/AMLODIPINE BESILATE COMBINED DRUG [Concomitant]
     Dosage: DOSE UNKNOWN
  4. TEPRENONE [Concomitant]
     Active Substance: TEPRENONE
     Dosage: DOSE UNKNOWN
     Route: 048

REACTIONS (5)
  - COVID-19 [Fatal]
  - Cardiac arrest [Fatal]
  - Fall [Unknown]
  - Glomerular filtration rate decreased [Unknown]
  - Loss of consciousness [Unknown]

NARRATIVE: CASE EVENT DATE: 20230928
